FAERS Safety Report 5425900-5 (Version None)
Quarter: 2007Q3

REPORT INFORMATION
  Report Type: 
  Country: None (occurrence: None)
  Receive Date: 20070725
  Receipt Date: 20060710
  Transmission Date: 20080115
  Serious: Yes (Death)
  Sender: FDA-Public Use
  Company Number: USA-2006-0024580

PATIENT
  Age: 48 Year
  Sex: Male
  Weight: 114.3 kg

DRUGS (2)
  1. MORPHINE SULFATE [Suspect]
     Indication: DRUG USE FOR UNKNOWN INDICATION
  2. CARISOPRODOL [Suspect]
     Indication: DRUG USE FOR UNKNOWN INDICATION

REACTIONS (1)
  - MULTIPLE DRUG OVERDOSE [None]
